FAERS Safety Report 17545196 (Version 1)
Quarter: 2020Q1

REPORT INFORMATION
  Report Type: Spontaneous
  Country: US (occurrence: US)
  Receive Date: 20200306
  Receipt Date: 20200306
  Transmission Date: 20200409
  Serious: Yes (Hospitalization)
  Sender: FDA-Public Use
  Company Number: None

PATIENT
  Age: 87 Year
  Sex: Male

DRUGS (1)
  1. LORAZEPAM (LORAZEPAM 0.5MG TAB) [Suspect]
     Active Substance: LORAZEPAM
     Dates: start: 20190903

REACTIONS (1)
  - Toxic encephalopathy [None]

NARRATIVE: CASE EVENT DATE: 20190903
